FAERS Safety Report 8238266-2 (Version None)
Quarter: 2012Q1

REPORT INFORMATION
  Report Type: 
  Country: None (occurrence: None)
  Receive Date: 20120327
  Receipt Date: 20120322
  Transmission Date: 20120608
  Serious: Yes (Death, Other)
  Sender: FDA-Public Use
  Company Number: JP-JNJFOC-20090608516

PATIENT
  Sex: Female
  Weight: 58 kg

DRUGS (2)
  1. DOXORUBICIN HCL [Suspect]
     Dosage: CYCLE 2
     Route: 042
     Dates: start: 20090528, end: 20090528
  2. DOXORUBICIN HCL [Suspect]
     Indication: OVARIAN CANCER RECURRENT
     Dosage: CYCLE 1
     Route: 042
     Dates: start: 20090428, end: 20090428

REACTIONS (2)
  - MYOCARDIAL INFARCTION [None]
  - OVARIAN CANCER RECURRENT [None]
